FAERS Safety Report 22033756 (Version 1)
Quarter: 2023Q1

REPORT INFORMATION
  Report Type: Spontaneous
  Country: US (occurrence: None)
  Receive Date: 20230222
  Receipt Date: 20230222
  Transmission Date: 20230418
  Serious: No
  Sender: FDA-Public Use
  Company Number: None

PATIENT
  Sex: Female

DRUGS (1)
  1. TALTZ [Suspect]
     Active Substance: IXEKIZUMAB
     Indication: Psoriasis
     Dosage: INJECT 80MG  EVERY 4 WEEKS  SUB-Q
     Route: 058
     Dates: start: 202201

REACTIONS (3)
  - Therapeutic product effect decreased [None]
  - Therapy cessation [None]
  - Psoriasis [None]
